FAERS Safety Report 11760863 (Version 1)
Quarter: 2015Q4

REPORT INFORMATION
  Report Type: Spontaneous
  Country: US (occurrence: US)
  Receive Date: 20151120
  Receipt Date: 20151120
  Transmission Date: 20160304
  Serious: Yes (Hospitalization)
  Sender: FDA-Public Use
  Company Number: US-PFIZER INC-2015394407

PATIENT
  Age: 71 Year
  Sex: Female
  Weight: 53 kg

DRUGS (2)
  1. MORPHINE SULFATE. [Suspect]
     Active Substance: MORPHINE SULFATE
     Indication: ANALGESIC THERAPY
     Dosage: 2 MG/ML, UNK (NO BASAL RATE, 1-MG DEMAND BOLUS, AND 6-MIN BOLUS INTERVAL)
     Route: 040
  2. MORPHINE SULFATE. [Suspect]
     Active Substance: MORPHINE SULFATE
     Indication: PAIN MANAGEMENT
     Dosage: 2 MG/ML, UNK (0.5 MG DEMAND BOLUS)
     Route: 040

REACTIONS (5)
  - Hypercapnia [Unknown]
  - Lung infiltration [Unknown]
  - Aspiration [Unknown]
  - Hypoxia [Unknown]
  - Lethargy [Unknown]
